FAERS Safety Report 11795981 (Version 2)
Quarter: 2015Q4

REPORT INFORMATION
  Report Type: Spontaneous
  Country: JP (occurrence: JP)
  Receive Date: 20151203
  Receipt Date: 20151214
  Transmission Date: 20160305
  Serious: Yes (Hospitalization)
  Sender: FDA-Public Use
  Company Number: JP-ROCHE-1639263

PATIENT
  Age: 80 Year
  Sex: Female
  Weight: 47 kg

DRUGS (10)
  1. ACTEMRA [Suspect]
     Active Substance: TOCILIZUMAB
     Indication: RHEUMATOID ARTHRITIS
     Dosage: MOST RECENT DOSE RECEIVED ON 11/SEP/2015
     Route: 041
     Dates: start: 20150918
  2. ONEALFA [Concomitant]
     Active Substance: ALFACALCIDOL
     Indication: OSTEOPOROSIS
     Route: 065
  3. TAKEPRON [Concomitant]
     Active Substance: LANSOPRAZOLE
     Indication: GASTRIC ULCER
     Dosage: AMOUNT OF 1 ONCE ADMINISTRATION: 15 (UNIT UNCERTAINTY)
     Route: 065
     Dates: start: 201108
  4. FOLIAMIN [Concomitant]
     Active Substance: FOLIC ACID
     Indication: RHEUMATOID ARTHRITIS
     Dosage: DOSAGE IS UNCERTAIN.
     Route: 048
  5. TENORMIN [Concomitant]
     Active Substance: ATENOLOL
     Indication: HYPERTENSION
     Dosage: AMOUNT OF 1 ONCE ADMINISTRATION: 25 (UNIT UNCERTAINTY)
     Route: 048
     Dates: start: 201207
  6. ACTONEL [Concomitant]
     Active Substance: RISEDRONATE SODIUM
     Indication: OSTEOPOROSIS
     Dosage: AMOUNT OF 1 ONCE ADMINISTRATION: 75 (UNIT UNCERTAINTY)
     Route: 065
     Dates: start: 201405
  7. ACTEMRA [Suspect]
     Active Substance: TOCILIZUMAB
     Indication: RHEUMATOID ARTHRITIS
     Dosage: MOST RECENT DOSE RECEIVED ON 11/SEP/2015
     Route: 041
     Dates: start: 20150717, end: 20150814
  8. LASIX [Concomitant]
     Active Substance: FUROSEMIDE
     Indication: CARDIAC FAILURE CHRONIC
     Route: 048
     Dates: start: 20150717
  9. RHEUMATREX [Concomitant]
     Active Substance: METHOTREXATE SODIUM
     Indication: RHEUMATOID ARTHRITIS
     Dosage: (2MG) 4C/WEEK?2C ON WEDNESDAY EVENING, 1C ON THURSDAY MORNING, AND 1C IN EVENING
     Route: 048
  10. LASIX [Concomitant]
     Active Substance: FUROSEMIDE
     Route: 065
     Dates: start: 20150717

REACTIONS (10)
  - Hypothyroidism [Unknown]
  - Liver abscess [Unknown]
  - Hyperthermia [Recovered/Resolved]
  - Vomiting [Recovered/Resolved]
  - Cholangitis [Recovered/Resolved]
  - Constipation [Recovered/Resolved]
  - Bile duct stone [Recovered/Resolved]
  - Abdominal distension [Recovered/Resolved]
  - Cardiac failure [Unknown]
  - Lower limb fracture [Recovered/Resolved]

NARRATIVE: CASE EVENT DATE: 201509
